FAERS Safety Report 6507295-9 (Version None)
Quarter: 2009Q4

REPORT INFORMATION
  Report Type: 
  Country: None (occurrence: None)
  Receive Date: 20091221
  Receipt Date: 20091216
  Transmission Date: 20100525
  Serious: Yes (Hospitalization)
  Sender: FDA-Public Use
  Company Number: PHHO2005DK10628

PATIENT
  Sex: Male
  Weight: 110 kg

DRUGS (7)
  1. VALSARTAN [Suspect]
     Dosage: LEVEL 1
     Route: 048
     Dates: start: 20030715
  2. NATEGLINIDE [Suspect]
     Dosage: LEVEL 2
     Route: 048
  3. PLACEBO PLACEBO [Suspect]
     Indication: CARDIOVASCULAR DISORDER
     Dosage: LEVEL 1
     Route: 048
     Dates: start: 20030715
  4. PLACEBO PLACEBO [Suspect]
     Dosage: LEVEL 2
     Route: 048
  5. SELO-ZOK [Concomitant]
  6. ASPIRIN [Concomitant]
  7. SIMVASTATIN [Concomitant]

REACTIONS (7)
  - ANGIOGRAM [None]
  - BLOOD CREATINE PHOSPHOKINASE MB INCREASED [None]
  - CHEST PAIN [None]
  - CORONARY ARTERY OCCLUSION [None]
  - DISEASE PROGRESSION [None]
  - MYOCARDIAL INFARCTION [None]
  - TROPONIN T INCREASED [None]
